FAERS Safety Report 25217872 (Version 2)
Quarter: 2025Q4

REPORT INFORMATION
  Report Type: Spontaneous
  Country: US (occurrence: US)
  Receive Date: 20250421
  Receipt Date: 20251124
  Transmission Date: 20260118
  Serious: Yes (Death, Life-Threatening, Other)
  Sender: BAXTER
  Company Number: US-BAXTER-2025BAX014065

PATIENT
  Age: 61 Year
  Sex: Female
  Weight: 66 kg

DRUGS (34)
  1. CYCLOPHOSPHAMIDE [Suspect]
     Active Substance: CYCLOPHOSPHAMIDE
     Indication: Lymphodepletion
     Dosage: 1000 MG/M2/DAY,1580 MG
     Route: 042
     Dates: start: 20250315, end: 20250315
  2. CYCLOPHOSPHAMIDE [Suspect]
     Active Substance: CYCLOPHOSPHAMIDE
     Dosage: 1000 MG/M2/DAY,1580 MG
     Route: 042
     Dates: start: 20250316, end: 20250316
  3. CYCLOPHOSPHAMIDE [Suspect]
     Active Substance: CYCLOPHOSPHAMIDE
     Dosage: 1000 MG/M2/DAY,1580 MG
     Route: 042
     Dates: start: 20250317, end: 20250317
  4. PANTOPRAZOLE [Suspect]
     Active Substance: PANTOPRAZOLE
     Dosage: UNK
     Route: 065
     Dates: start: 20250219
  5. POTASSIUM CHLORIDE [Suspect]
     Active Substance: POTASSIUM CHLORIDE
     Dosage: UNK
     Route: 065
     Dates: start: 20240830, end: 20250325
  6. SODIUM CHLORIDE [Suspect]
     Active Substance: SODIUM CHLORIDE
     Dosage: UNK
     Route: 065
     Dates: start: 20250321, end: 20250321
  7. FUROSEMIDE [Suspect]
     Active Substance: FUROSEMIDE
     Dosage: UNK
     Route: 065
     Dates: start: 20250312, end: 20250319
  8. ACETAMINOPHEN [Suspect]
     Active Substance: ACETAMINOPHEN
     Dosage: UNK
     Route: 065
     Dates: start: 20250312, end: 20250312
  9. VANCOMYCIN [Suspect]
     Active Substance: VANCOMYCIN
     Dosage: UNK
     Route: 065
     Dates: start: 20250324, end: 20250324
  10. FAMOTIDINE [Suspect]
     Active Substance: FAMOTIDINE
     Dosage: UNK
     Route: 065
     Dates: start: 20250314, end: 20250326
  11. MAGNESIUM SULFATE [Suspect]
     Active Substance: MAGNESIUM SULFATE
     Dosage: UNK
     Route: 065
     Dates: start: 20250325, end: 20250325
  12. FLUDARABINE [Suspect]
     Active Substance: FLUDARABINE PHOSPHATE
     Indication: Lymphodepletion
     Dosage: 30 MG/M2/DAY, 47.5 MG, REGIMEN 1, DAY 6
     Route: 042
     Dates: start: 20250314, end: 20250314
  13. FLUDARABINE [Suspect]
     Active Substance: FLUDARABINE PHOSPHATE
     Dosage: 30 MG/M2/DAY,47.5 MG, REGIMEN 2, DAY 6
     Route: 042
     Dates: start: 20250315, end: 20250315
  14. FLUDARABINE [Suspect]
     Active Substance: FLUDARABINE PHOSPHATE
     Dosage: 30 MG/M2/DAY,47.5 MG, REGIMEN 3, DAY 6
     Route: 042
     Dates: start: 20250316, end: 20250316
  15. FLUDARABINE [Suspect]
     Active Substance: FLUDARABINE PHOSPHATE
     Dosage: 30 MG/M2/DAY,47.5 MG, REGIMEN 4, DAY 6
     Route: 042
     Dates: start: 20250317, end: 20250317
  16. FLUDEOXYGLUCOSE F-18 [Suspect]
     Active Substance: FLUDEOXYGLUCOSE F-18
     Indication: Premedication
     Dosage: UNK
     Route: 042
     Dates: start: 20250311, end: 20250311
  17. BUDESONIDE [Concomitant]
     Active Substance: BUDESONIDE
     Dosage: UNK
     Route: 065
     Dates: start: 20250115, end: 20250312
  18. ACYCLOVIR [Concomitant]
     Active Substance: ACYCLOVIR
     Dosage: UNK
     Route: 065
     Dates: start: 20240701, end: 20250303
  19. CHOLECALCIFEROL [Concomitant]
     Active Substance: CHOLECALCIFEROL
     Dosage: UNK
     Route: 065
     Dates: start: 20240712, end: 20250327
  20. DAPSONE [Concomitant]
     Active Substance: DAPSONE
     Dosage: UNK
     Route: 065
     Dates: start: 20241030
  21. LETERMOVIR [Concomitant]
     Active Substance: LETERMOVIR
     Dosage: UNK
     Route: 065
     Dates: start: 20240719
  22. LEVOTHYROXINE [Concomitant]
     Active Substance: LEVOTHYROXINE
     Dosage: UNK
     Route: 065
     Dates: start: 20240109
  23. ETOMIDATE [Concomitant]
     Active Substance: ETOMIDATE
     Dosage: UNK
     Route: 065
     Dates: start: 20250325, end: 20250325
  24. ROCURONIUM [Concomitant]
     Active Substance: ROCURONIUM BROMIDE
     Dosage: UNK
     Route: 065
     Dates: start: 20250325, end: 20250325
  25. POSACONAZOLE [Concomitant]
     Active Substance: POSACONAZOLE
     Dosage: UNK
     Route: 065
     Dates: start: 20250320, end: 20250325
  26. DIPHENHYDRAMINE [Concomitant]
     Active Substance: DIPHENHYDRAMINE
     Dosage: UNK
     Route: 065
     Dates: start: 20250312, end: 20250327
  27. IOVERSOL [Concomitant]
     Active Substance: IOVERSOL
     Dosage: UNK
     Route: 065
     Dates: start: 20250314, end: 20250314
  28. INSULIN LISPRO [Concomitant]
     Active Substance: INSULIN LISPRO
     Dosage: UNK
     Route: 065
     Dates: start: 20250325, end: 20250326
  29. FENTANYL [Concomitant]
     Active Substance: FENTANYL
     Dosage: UNK
     Route: 065
     Dates: start: 20250313, end: 20250313
  30. CALCIUM GLUCONATE [Concomitant]
     Active Substance: CALCIUM GLUCONATE
     Dosage: UNK
     Route: 065
     Dates: start: 20250325, end: 20250327
  31. POTASSIUM PHOSPHATES [Concomitant]
     Active Substance: POTASSIUM PHOSPHATE, DIBASIC\POTASSIUM PHOSPHATE, MONOBASIC
     Dosage: UNK
     Route: 065
     Dates: start: 20250322, end: 20250322
  32. LIDOCAINE [Concomitant]
     Active Substance: LIDOCAINE
     Dosage: UNK
     Route: 065
     Dates: start: 20250313, end: 20250313
  33. LOPERAMIDE [Concomitant]
     Active Substance: LOPERAMIDE
     Dosage: UNK
     Route: 065
     Dates: start: 20250324, end: 20250327
  34. VALACYCLOVIR [Concomitant]
     Active Substance: VALACYCLOVIR HYDROCHLORIDE
     Dosage: UNK
     Route: 065
     Dates: start: 20250314, end: 20250327

REACTIONS (23)
  - Haemophagocytic lymphohistiocytosis [Fatal]
  - Cytokine release syndrome [Unknown]
  - Immune effector cell-associated neurotoxicity syndrome [Unknown]
  - Neurotoxicity [Unknown]
  - Lactic acidosis [Unknown]
  - Pupil fixed [Unknown]
  - Brain oedema [Unknown]
  - Shock [Unknown]
  - Acute respiratory failure [Recovered/Resolved with Sequelae]
  - Acute hepatic failure [Unknown]
  - Encephalopathy [Unknown]
  - Febrile neutropenia [Unknown]
  - Sepsis [Unknown]
  - Mydriasis [Unknown]
  - Wheezing [Unknown]
  - Coagulopathy [Unknown]
  - Mental status changes [Unknown]
  - Agitation [Unknown]
  - Hypoglycaemia [Unknown]
  - Hypotension [Unknown]
  - Tremor [Unknown]
  - Pyrexia [Unknown]
  - Bradycardia [Unknown]

NARRATIVE: CASE EVENT DATE: 20250320
